FAERS Safety Report 9168204 (Version 2)
Quarter: 2013Q1

REPORT INFORMATION
  Report Type: Spontaneous
  Country: GB (occurrence: None)
  Receive Date: 20130308
  Receipt Date: 20130328
  Transmission Date: 20140127
  Serious: Yes (Other)
  Sender: FDA-Public Use
  Company Number: AUR-APL-2013-01877

PATIENT
  Age: 43 Year
  Sex: Male

DRUGS (3)
  1. RIBAVIRIN [Suspect]
     Indication: HEPATITIS C
     Route: 048
     Dates: start: 20120619, end: 20121126
  2. PEGINTERFERON ALFA-2B [Suspect]
     Indication: HEPATITIS C
     Route: 058
     Dates: start: 20120619, end: 20121126
  3. INCIVO [Suspect]
     Indication: HEPATITIS C
     Route: 048
     Dates: start: 20120619, end: 20120911

REACTIONS (17)
  - Faeces discoloured [None]
  - Rash [None]
  - Aggression [None]
  - Suicidal ideation [None]
  - Aggression [None]
  - Refusal of treatment by patient [None]
  - Proctalgia [None]
  - Mood swings [None]
  - Diarrhoea [None]
  - Fatigue [None]
  - Feeling cold [None]
  - Headache [None]
  - Injection site rash [None]
  - Oral candidiasis [None]
  - Insomnia [None]
  - Nausea [None]
  - Rectal haemorrhage [None]
